FAERS Safety Report 4727660-X (Version None)
Quarter: 2005Q3

REPORT INFORMATION
  Report Type: 
  Country: None (occurrence: None)
  Receive Date: 20050728
  Receipt Date: 20050209
  Transmission Date: 20060218
  Serious: Yes (Hospitalization)
  Sender: FDA-Public Use
  Company Number: DE-ABBOTT-05P-062-0290243-00

PATIENT
  Sex: Female
  Weight: 59 kg

DRUGS (8)
  1. HUMIRA [Suspect]
     Indication: RHEUMATOID ARTHRITIS
     Dosage: 40 MG
     Route: 058
     Dates: start: 20040406, end: 20041124
  2. HUMIRA [Suspect]
     Dosage: 40 MG
     Route: 058
     Dates: start: 20050131
  3. PREDNISONE [Concomitant]
     Indication: RHEUMATOID ARTHRITIS
     Dates: start: 20040901
  4. LEKOVIT CA [Concomitant]
     Indication: OSTEOPOROSIS PROPHYLAXIS
     Dates: start: 20030201
  5. CILAZAPRIL [Concomitant]
     Indication: HYPOTENSION
     Dates: start: 20030201
  6. ESOMEPRAZOLE [Concomitant]
     Indication: PROPHYLAXIS AGAINST GASTROINTESTINAL ULCER
     Dates: start: 20030201
  7. CELECOXIB [Concomitant]
     Indication: RHEUMATOID ARTHRITIS
     Dates: start: 20031126
  8. COMMERCIAL HUMIRA [Concomitant]
     Indication: RHEUMATOID ARTHRITIS
     Dates: start: 20040119

REACTIONS (7)
  - DYSPNOEA [None]
  - HIATUS HERNIA [None]
  - HYPERTENSION [None]
  - NEOPLASM [None]
  - PANCREATITIS [None]
  - PANCREATITIS ACUTE [None]
  - SLEEP DISORDER [None]
